FAERS Safety Report 6300927-X (Version None)
Quarter: 2009Q3

REPORT INFORMATION
  Report Type: 
  Country: None (occurrence: None)
  Receive Date: 20090806
  Receipt Date: 20090806
  Transmission Date: 20100115
  Serious: No
  Sender: FDA-Public Use
  Company Number: None

PATIENT
  Age: 72 Year
  Sex: Female
  Weight: 77.1115 kg

DRUGS (1)
  1. OLUX E [Suspect]
     Indication: PRURITUS
     Dosage: PUT ON SCALP BID 060
     Dates: start: 20090305

REACTIONS (1)
  - BURNING SENSATION [None]
